FAERS Safety Report 19736200 (Version 1)
Quarter: 2021Q3

REPORT INFORMATION
  Report Type: Spontaneous
  Country: PT (occurrence: PT)
  Receive Date: 20210824
  Receipt Date: 20210824
  Transmission Date: 20211014
  Serious: Yes (Other)
  Sender: FDA-Public Use
  Company Number: PT-SA-2021SA275278

PATIENT
  Age: 7 Year
  Sex: Male

DRUGS (1)
  1. ANTI?THYMOCYTE GLOBULIN (RABBIT) NOS [Suspect]
     Active Substance: LAPINE T-LYMPHOCYTE IMMUNE GLOBULIN
     Indication: GRAFT VERSUS HOST DISEASE
     Dosage: 34MG/DAY 5 DAYS ? OCCURRED IN THE FIRST ADMINISTRATION
     Route: 042
     Dates: start: 20210721, end: 20210721

REACTIONS (5)
  - Rash maculo-papular [Recovered/Resolved]
  - Cough [Recovered/Resolved]
  - Lip oedema [Recovered/Resolved]
  - Wheezing [Recovered/Resolved]
  - Larynx irritation [Recovered/Resolved]
